FAERS Safety Report 6428638-0 (Version None)
Quarter: 2009Q4

REPORT INFORMATION
  Report Type: 
  Country: None (occurrence: None)
  Receive Date: 20091102
  Receipt Date: 20091021
  Transmission Date: 20100525
  Serious: No
  Sender: FDA-Public Use
  Company Number: 2009-03546

PATIENT
  Age: 68 Year
  Sex: Female
  Weight: 76.8 kg

DRUGS (12)
  1. VELCADE [Suspect]
     Indication: CHRONIC LYMPHOCYTIC LEUKAEMIA
     Dosage: 1.3 MG/M2, INTRAVENOUS
     Route: 042
     Dates: start: 20090803, end: 20090824
  2. CYCLOPHOSPHAMIDE [Suspect]
     Indication: CHRONIC LYMPHOCYTIC LEUKAEMIA
     Dosage: 550 MG, ORAL
     Route: 048
     Dates: start: 20090420, end: 20090820
  3. RITUXIMAB(RITUXIMAB) INJECTION [Suspect]
     Indication: CHRONIC LYMPHOCYTIC LEUKAEMIA
     Dosage: 698 MG, INTRAVENOUS
     Route: 042
     Dates: start: 20090420, end: 20090817
  4. DEXAMETHASONE TAB [Suspect]
     Indication: CHRONIC LYMPHOCYTIC LEUKAEMIA
     Dosage: 40 MG, ORAL
     Route: 048
     Dates: start: 20090420, end: 20090825
  5. ATENOLOL [Concomitant]
  6. POTASSIUM CHLORIDE [Concomitant]
  7. VITAMIN B-12 [Concomitant]
  8. FOSAMAX [Concomitant]
  9. METFORMIN HCL [Concomitant]
  10. CALTRATE + D (CLOCALCIFEROL, CALCIUM CARBONATE) [Concomitant]
  11. LESCOL [Concomitant]
  12. CLARITIN [Concomitant]

REACTIONS (5)
  - HERPES ZOSTER [None]
  - MENINGITIS VIRAL [None]
  - MUSCULAR WEAKNESS [None]
  - MYELITIS [None]
  - PERIPHERAL SENSORY NEUROPATHY [None]
